FAERS Safety Report 17031642 (Version 2)
Quarter: 2020Q1

REPORT INFORMATION
  Report Type: Spontaneous
  Country: US (occurrence: US)
  Receive Date: 20191114
  Receipt Date: 20200115
  Transmission Date: 20200409
  Serious: No
  Sender: FDA-Public Use
  Company Number: US-PFIZER INC-2019490488

PATIENT
  Age: 60 Year
  Sex: Female

DRUGS (2)
  1. LAMISIL [Concomitant]
     Active Substance: TERBINAFINE HYDROCHLORIDE
     Dosage: UNK
  2. KERYDIN [Suspect]
     Active Substance: TAVABOROLE
     Dosage: UNK

REACTIONS (1)
  - Application site pain [Unknown]
